FAERS Safety Report 23555557 (Version 1)
Quarter: 2024Q1

REPORT INFORMATION
  Report Type: Spontaneous
  Country: US (occurrence: US)
  Receive Date: 20240222
  Receipt Date: 20240222
  Transmission Date: 20240409
  Serious: Yes (Hospitalization)
  Sender: FDA-Public Use
  Company Number: US-LANTHEUS-LMI-2023-00334

PATIENT
  Age: 51 Year
  Sex: Female
  Weight: 89 kg

DRUGS (1)
  1. DEFINITY [Suspect]
     Active Substance: PERFLUTREN
     Indication: Echocardiogram
     Dosage: 1 MILLILITRE (1.5 ML DEFINITY PREPARED IN 8 ML NORMAL SALINE)
     Route: 042
     Dates: start: 20230310, end: 20230310

REACTIONS (3)
  - Abdominal pain upper [Recovered/Resolved]
  - Chest pain [Recovered/Resolved]
  - Condition aggravated [Recovered/Resolved]

NARRATIVE: CASE EVENT DATE: 20230310
